FAERS Safety Report 23573612 (Version 4)
Quarter: 2024Q2

REPORT INFORMATION
  Report Type: Spontaneous
  Country: ES (occurrence: ES)
  Receive Date: 20240228
  Receipt Date: 20240408
  Transmission Date: 20240716
  Serious: Yes (Other)
  Sender: FDA-Public Use
  Company Number: ES-MODERNATX, INC.-MOD-2024-755718

PATIENT
  Age: 52 Year
  Sex: Female

DRUGS (3)
  1. ADALIMUMAB [Suspect]
     Active Substance: ADALIMUMAB\ISOPROPYL ALCOHOL
     Indication: Spondylitis
     Dosage: 40 MILLIGRAM, Q2WK
     Route: 058
  2. JANSSEN COVID-19 VACCINE [Suspect]
     Active Substance: AD26.COV2.S
     Indication: COVID-19 prophylaxis
     Dosage: DOSE 1
     Route: 065
  3. SPIKEVAX (ELASOMERAN) [Suspect]
     Active Substance: ELASOMERAN
     Indication: COVID-19 prophylaxis
     Dosage: DOSE 2
     Route: 065

REACTIONS (5)
  - Acute generalised exanthematous pustulosis [Recovering/Resolving]
  - Palmoplantar pustulosis [Recovering/Resolving]
  - COVID-19 immunisation [Unknown]
  - Interchange of vaccine products [Unknown]
  - Off label use [Unknown]
